FAERS Safety Report 20450386 (Version 2)
Quarter: 2022Q1

REPORT INFORMATION
  Report Type: Report from Study
  Country: SE (occurrence: SE)
  Receive Date: 20220209
  Receipt Date: 20220222
  Transmission Date: 20220423
  Serious: Yes (Life-Threatening, Hospitalization, Other)
  Sender: FDA-Public Use
  Company Number: SE-AstraZeneca-2021A866920

PATIENT
  Age: 58 Year
  Sex: Female

DRUGS (17)
  1. TRASTUZUMAB DERUXTECAN [Suspect]
     Active Substance: TRASTUZUMAB DERUXTECAN
     Indication: Breast cancer metastatic
     Dosage: 360 MG, ONCE EVERY 3 WK
     Route: 042
     Dates: start: 20211125, end: 20211125
  2. TRASTUZUMAB DERUXTECAN [Suspect]
     Active Substance: TRASTUZUMAB DERUXTECAN
     Dosage: 295 MG, ONCE EVERY 3 WK
     Route: 042
     Dates: start: 20211227, end: 20220119
  3. TRASTUZUMAB DERUXTECAN [Suspect]
     Active Substance: TRASTUZUMAB DERUXTECAN
     Dosage: 295 MG, ONCE EVERY 3 WK
     Route: 042
     Dates: start: 20220209, end: 20220209
  4. PERTUZUMAB [Suspect]
     Active Substance: PERTUZUMAB
     Indication: Breast cancer metastatic
     Dosage: 840 MG, ONCE EVERY 3 WK
     Route: 042
     Dates: start: 20211125, end: 20211125
  5. PERTUZUMAB [Suspect]
     Active Substance: PERTUZUMAB
     Dosage: 420 MG, ONCE EVERY 3 WK
     Route: 042
     Dates: start: 20211227, end: 20220119
  6. PERTUZUMAB [Suspect]
     Active Substance: PERTUZUMAB
     Dosage: 420 MG, ONCE EVERY 3 WK
     Route: 042
     Dates: start: 20220209, end: 20220209
  7. LEVOTHYROXINE [Concomitant]
     Active Substance: LEVOTHYROXINE
     Indication: Hypothyroidism
     Route: 048
     Dates: start: 20131008
  8. LEVOTHYROXINE [Concomitant]
     Active Substance: LEVOTHYROXINE
     Route: 048
     Dates: start: 20200520
  9. DENOSUMAB [Concomitant]
     Active Substance: DENOSUMAB
     Indication: Osteoporosis
     Dosage: 120 MG
     Route: 058
     Dates: start: 20211110
  10. CALCIUM\CHOLECALCIFEROL [Concomitant]
     Active Substance: CALCIUM\CHOLECALCIFEROL
     Indication: Osteoporosis
     Dosage: 500 MG/ 400 IE BID
     Route: 048
     Dates: start: 20211102
  11. CARBOMER [Concomitant]
     Active Substance: CARBOMER
     Indication: Dry eye
     Dosage: 2 MG/G AS NEEDED
     Route: 047
     Dates: start: 20181023
  12. ACETAMINOPHEN [Concomitant]
     Active Substance: ACETAMINOPHEN
     Indication: Musculoskeletal chest pain
     Dosage: 500 MG
     Route: 048
     Dates: start: 20210921
  13. ASPIRIN [Concomitant]
     Active Substance: ASPIRIN
     Indication: Headache
     Dosage: 250 MG
     Route: 048
     Dates: start: 20110101
  14. MOVICOL [Concomitant]
     Active Substance: POLYETHYLENE GLYCOL 3350\POTASSIUM CHLORIDE\SODIUM BICARBONATE\SODIUM CHLORIDE
     Indication: Constipation
     Dosage: 1-2 ORAL SACHETS DAILY
     Route: 048
     Dates: start: 20211102
  15. METOCLOPRAMIDE [Concomitant]
     Active Substance: METOCLOPRAMIDE
     Indication: Nausea
     Dosage: 10 MG
     Route: 048
     Dates: start: 20211028
  16. OXYCODONE [Concomitant]
     Active Substance: OXYCODONE
     Indication: Bone pain
     Dosage: 5 MG
     Route: 048
     Dates: start: 20211103
  17. BETAMETASON [Concomitant]
     Indication: Prophylaxis of nausea and vomiting
     Dosage: 8 MG ON TRETMENT DAY 1H BEFORE TRETMENT, 4 MG THE DAY AFTER TREATMENT, 3 MG THE FOLLOWING DAY, 2 MG
     Route: 048
     Dates: start: 20211125

REACTIONS (2)
  - Febrile neutropenia [Recovered/Resolved]
  - Hypotension [Recovered/Resolved]

NARRATIVE: CASE EVENT DATE: 20211208
